FAERS Safety Report 14621983 (Version 1)
Quarter: 2018Q1

REPORT INFORMATION
  Report Type: Spontaneous
  Country: PT (occurrence: PT)
  Receive Date: 20180310
  Receipt Date: 20180310
  Transmission Date: 20180509
  Serious: Yes (Hospitalization, Disabling, Other)
  Sender: FDA-Public Use
  Company Number: PT-AUROBINDO-AUR-APL-2018-012934

PATIENT
  Age: 57 Year
  Sex: Female

DRUGS (5)
  1. MEROPENEM. [Concomitant]
     Active Substance: MEROPENEM
     Indication: ARTHRITIS INFECTIVE
     Dosage: ()
     Route: 042
  2. VANCOMYCIN [Concomitant]
     Active Substance: VANCOMYCIN
     Indication: ARTHRITIS INFECTIVE
     Dosage: ()
     Route: 042
  3. METRONIDAZOLE. [Suspect]
     Active Substance: METRONIDAZOLE
     Route: 048
  4. METRONIDAZOLE. [Suspect]
     Active Substance: METRONIDAZOLE
     Indication: ARTHRITIS INFECTIVE
     Dosage: ()
     Route: 042
  5. CEFTRIAXONE. [Concomitant]
     Active Substance: CEFTRIAXONE
     Indication: ARTHRITIS INFECTIVE
     Dosage: ()
     Route: 042

REACTIONS (7)
  - Fatigue [Unknown]
  - Encephalopathy [Recovered/Resolved]
  - Cerebellar syndrome [Unknown]
  - Hyporesponsive to stimuli [Unknown]
  - Dysmetria [Unknown]
  - Gait disturbance [Unknown]
  - Central nervous system lesion [Unknown]
